FAERS Safety Report 21222181 (Version 1)
Quarter: 2022Q3

REPORT INFORMATION
  Report Type: Spontaneous
  Country: IT (occurrence: IT)
  Receive Date: 20220817
  Receipt Date: 20220817
  Transmission Date: 20221026
  Serious: Yes (Other)
  Sender: FDA-Public Use
  Company Number: IT-NOVARTISPH-NVSC2022IT185407

PATIENT
  Sex: Male

DRUGS (1)
  1. IMATINIB [Suspect]
     Active Substance: IMATINIB
     Indication: Chronic myeloid leukaemia
     Dosage: 400 MG
     Route: 065
     Dates: start: 20050510, end: 20080310

REACTIONS (5)
  - Cardiotoxicity [Unknown]
  - Arthralgia [Unknown]
  - Fluid retention [Unknown]
  - Weight increased [Unknown]
  - Drug intolerance [Unknown]
